FAERS Safety Report 8315656 (Version 4)
Quarter: 2015Q2

REPORT INFORMATION
  Report Type: Report from Study
  Country: FR (occurrence: FR)
  Receive Date: 20111229
  Receipt Date: 20150514
  Transmission Date: 20150821
  Serious: Yes (Hospitalization, Other)
  Sender: FDA-Public Use
  Company Number: FR-ROCHE-1016060

PATIENT
  Age: 12 Year
  Sex: Female
  Weight: 21.9 kg

DRUGS (7)
  1. TOCILIZUMAB [Suspect]
     Active Substance: TOCILIZUMAB
     Indication: JUVENILE IDIOPATHIC ARTHRITIS
     Route: 042
     Dates: start: 20100208
  2. TOCILIZUMAB [Suspect]
     Active Substance: TOCILIZUMAB
     Dosage: PERMANENTLY DISCONTINUED
     Route: 042
     Dates: end: 20111025
  3. MOPRAL [Concomitant]
     Active Substance: OMEPRAZOLE SODIUM
     Route: 065
     Dates: start: 20100515
  4. TOCILIZUMAB [Suspect]
     Active Substance: TOCILIZUMAB
     Indication: JUVENILE IDIOPATHIC ARTHRITIS
     Route: 042
     Dates: start: 20100531
  5. IBUPROFEN. [Concomitant]
     Active Substance: IBUPROFEN
     Dosage: ONE DOSE
     Route: 065
     Dates: start: 20100107
  6. IMMUNE GLOBULIN [Concomitant]
     Active Substance: HUMAN IMMUNOGLOBULIN G
     Route: 065
     Dates: start: 20120404, end: 20120405
  7. IMMUNE GLOBULIN [Concomitant]
     Active Substance: HUMAN IMMUNOGLOBULIN G
     Route: 042
     Dates: start: 20120118, end: 20120119

REACTIONS (3)
  - Systemic sclerosis [Not Recovered/Not Resolved]
  - Scleroderma [Unknown]
  - Fasciitis [Unknown]

NARRATIVE: CASE EVENT DATE: 20111118
